FAERS Safety Report 15272048 (Version 1)
Quarter: 2018Q3

REPORT INFORMATION
  Report Type: Spontaneous
  Country: FR (occurrence: FR)
  Receive Date: 20180813
  Receipt Date: 20180813
  Transmission Date: 20181010
  Serious: Yes (Life-Threatening)
  Sender: FDA-Public Use
  Company Number: FR-NAPPMUNDI-GBR-2018-0058236

PATIENT
  Age: 39 Year
  Sex: Male
  Weight: 72 kg

DRUGS (14)
  1. PYRIDOXINE W/THIAMINE [Suspect]
     Active Substance: PYRIDOXINE\THIAMINE
     Indication: VITAMIN SUPPLEMENTATION
     Dosage: 3 DF,DAILY
     Route: 048
     Dates: start: 20180202, end: 20180316
  2. DOLIPRANE [Suspect]
     Active Substance: ACETAMINOPHEN
     Indication: PYREXIA
     Dosage: 4 DF,DAILY
     Route: 048
     Dates: start: 20180105, end: 20180316
  3. CLARITHROMYCIN. [Suspect]
     Active Substance: CLARITHROMYCIN
     Indication: MYCOBACTERIAL INFECTION
     Dosage: 2 DF,DAILY
     Route: 048
     Dates: start: 20180125, end: 20180316
  4. IMOVANE [Suspect]
     Active Substance: ZOPICLONE
     Indication: AFFECTIVE DISORDER
     Dosage: 1 DF,DAILY
     Route: 048
     Dates: start: 20180312, end: 20180314
  5. NICOBION [Suspect]
     Active Substance: NIACINAMIDE
     Indication: VITAMIN SUPPLEMENTATION
     Dosage: 2 DF,DAILY
     Route: 048
     Dates: start: 20180202, end: 20180317
  6. LOVENOX [Suspect]
     Active Substance: ENOXAPARIN SODIUM
     Indication: PROPHYLAXIS
     Dosage: 4000 UI,DAILY
     Route: 058
     Dates: start: 20180207, end: 20180316
  7. TRUVADA [Suspect]
     Active Substance: EMTRICITABINE\TENOFOVIR DISOPROXIL FUMARATE
     Indication: HIV INFECTION
     Dosage: 1 DF,DAILY
     Route: 048
     Dates: start: 20180104, end: 20180317
  8. OXYNORMORO [Suspect]
     Active Substance: OXYCODONE HYDROCHLORIDE
     Indication: PAIN
     Dosage: 3 DF, DAILY (10 MG STRENGTH)
     Route: 048
     Dates: start: 20180314, end: 20180315
  9. DEXAMBUTOL [Suspect]
     Active Substance: ETHAMBUTOL HYDROCHLORIDE
     Indication: MYCOBACTERIAL INFECTION
     Dosage: 2 DF,DAILY
     Route: 048
     Dates: start: 20180125, end: 20180316
  10. BACTRIM [Suspect]
     Active Substance: SULFAMETHOXAZOLE\TRIMETHOPRIM
     Indication: PROPHYLAXIS
     Dosage: 1 DF,DAILY
     Route: 048
     Dates: start: 20180105, end: 20180315
  11. ANSATIPINE [Suspect]
     Active Substance: RIFABUTIN
     Indication: MYCOBACTERIAL INFECTION
     Dosage: 4 DF,DAILY
     Route: 048
     Dates: start: 20180125, end: 20180316
  12. PREGABALIN. [Suspect]
     Active Substance: PREGABALIN
     Indication: NEURALGIA
     Dosage: 2 DF,DAILY
     Route: 048
     Dates: start: 20180308, end: 20180315
  13. LANSOYL [Suspect]
     Active Substance: MINERAL OIL
     Indication: CONSTIPATION
     Dosage: 2 DF,DAILY
     Route: 048
     Dates: start: 20180212, end: 20180317
  14. DEROXAT [Suspect]
     Active Substance: PAROXETINE HYDROCHLORIDE
     Indication: AFFECTIVE DISORDER
     Dosage: 1 DF,DAILY
     Route: 048
     Dates: start: 20180308, end: 20180316

REACTIONS (1)
  - Toxic epidermal necrolysis [Recovering/Resolving]

NARRATIVE: CASE EVENT DATE: 20180315
